FAERS Safety Report 6551892-1 (Version None)
Quarter: 2010Q1

REPORT INFORMATION
  Report Type: 
  Country: None (occurrence: None)
  Receive Date: 20100120
  Receipt Date: 20100106
  Transmission Date: 20100710
  Serious: Yes (Hospitalization)
  Sender: FDA-Public Use
  Company Number: 1-21245701

PATIENT
  Age: 72 Year
  Sex: Female

DRUGS (1)
  1. FENTANYL-50 [Suspect]
     Indication: BACK PAIN
     Dosage: 50 MCG/HR EVERY 72 HR, TRANSDERMAL
     Route: 062
     Dates: start: 20100105, end: 20100106

REACTIONS (4)
  - APPLICATION SITE VESICLES [None]
  - DEVICE LEAKAGE [None]
  - PULMONARY THROMBOSIS [None]
  - SKIN EXFOLIATION [None]
